FAERS Safety Report 10794894 (Version 3)
Quarter: 2015Q2

REPORT INFORMATION
  Report Type: Spontaneous
  Country: US (occurrence: US)
  Receive Date: 20150213
  Receipt Date: 20150406
  Transmission Date: 20150821
  Serious: Yes (Life-Threatening, Hospitalization, Other)
  Sender: FDA-Public Use
  Company Number: PHEH2015US003193

PATIENT
  Age: 81 Year
  Sex: Female
  Weight: 64.5 kg

DRUGS (1)
  1. GLEEVEC [Suspect]
     Active Substance: IMATINIB MESYLATE
     Indication: CHRONIC MYELOID LEUKAEMIA
     Dosage: 400 MG, QD (DAILY)
     Route: 048
     Dates: start: 20140527, end: 20140621

REACTIONS (8)
  - Cardiotoxicity [Recovered/Resolved]
  - Thrombocytopenia [Recovered/Resolved]
  - Pneumonia [Recovered/Resolved]
  - Dyspnoea [Recovered/Resolved]
  - Cardiac failure congestive [Recovered/Resolved]
  - Anaemia [Recovered/Resolved]
  - Pyrexia [Unknown]
  - Oedema peripheral [Unknown]

NARRATIVE: CASE EVENT DATE: 20140620
